FAERS Safety Report 7172646-1 (Version None)
Quarter: 2010Q4

REPORT INFORMATION
  Report Type: 
  Country: None (occurrence: None)
  Receive Date: 20101217
  Receipt Date: 20100216
  Transmission Date: 20110411
  Serious: No
  Sender: FDA-Public Use
  Company Number: US-AMGEN-KDL392005

PATIENT

DRUGS (5)
  1. ENBREL [Suspect]
     Indication: PSORIASIS
     Dosage: 50 MG, QWK
     Route: 058
     Dates: start: 20080711, end: 20100210
  2. ALPRAZOLAM [Concomitant]
  3. TRIAMCINOLONE [Concomitant]
     Dosage: UNK UNK, UNK
  4. NAPROXEN SODIUM [Concomitant]
     Dosage: UNK UNK, UNK
     Dates: end: 20100108
  5. UNSPECIFIED MEDICATION [Concomitant]
     Dosage: UNK UNK, UNK

REACTIONS (6)
  - ANXIETY [None]
  - DRUG HYPERSENSITIVITY [None]
  - HYPERTENSION [None]
  - NERVOUSNESS [None]
  - PSORIASIS [None]
  - SWELLING FACE [None]
